FAERS Safety Report 10161432 (Version 2)
Quarter: 2014Q2

REPORT INFORMATION
  Report Type: Spontaneous
  Country: US (occurrence: US)
  Receive Date: 20140509
  Receipt Date: 20140509
  Transmission Date: 20141212
  Serious: Yes (Other)
  Sender: FDA-Public Use
  Company Number: US-TEVA-418935USA

PATIENT
  Age: 37 Year
  Sex: Male
  Weight: 99.88 kg

DRUGS (1)
  1. CLARAVIS [Suspect]
     Indication: ACNE
     Dosage: 60 MILLIGRAM DAILY;
     Route: 048
     Dates: start: 20121203, end: 20130103

REACTIONS (3)
  - Diarrhoea haemorrhagic [Recovering/Resolving]
  - Colitis ulcerative [Unknown]
  - Weight decreased [Unknown]
